FAERS Safety Report 14538593 (Version 1)
Quarter: 2018Q1

REPORT INFORMATION
  Report Type: Spontaneous
  Country: US (occurrence: US)
  Receive Date: 20180216
  Receipt Date: 20180216
  Transmission Date: 20180509
  Serious: Yes (Other)
  Sender: FDA-Public Use
  Company Number: US-JNJFOC-20180208182

PATIENT
  Age: 6 Year
  Sex: Male

DRUGS (8)
  1. INFANTS TYLENOL [Suspect]
     Active Substance: ACETAMINOPHEN
     Route: 065
  2. INFANTS MOTRIN [Suspect]
     Active Substance: IBUPROFEN
     Route: 065
  3. CHILDRENS MOTRIN [Suspect]
     Active Substance: IBUPROFEN
     Indication: INFLUENZA
     Route: 065
  4. INFANTS MOTRIN [Suspect]
     Active Substance: IBUPROFEN
     Indication: INFLUENZA
     Route: 065
  5. CHILDRENS TYLENOL [Suspect]
     Active Substance: ACETAMINOPHEN
     Indication: INFLUENZA
     Route: 065
  6. CHILDRENS MOTRIN [Suspect]
     Active Substance: IBUPROFEN
     Route: 065
  7. INFANTS TYLENOL [Suspect]
     Active Substance: ACETAMINOPHEN
     Indication: INFLUENZA
     Route: 065
  8. CHILDRENS TYLENOL [Suspect]
     Active Substance: ACETAMINOPHEN
     Route: 065

REACTIONS (3)
  - Product use in unapproved indication [Unknown]
  - Product contamination physical [Unknown]
  - Blindness unilateral [Not Recovered/Not Resolved]
